FAERS Safety Report 9472873 (Version 1)
Quarter: 2013Q3

REPORT INFORMATION
  Report Type: Spontaneous
  Country: US (occurrence: US)
  Receive Date: 20130823
  Receipt Date: 20130823
  Transmission Date: 20140515
  Serious: No
  Sender: FDA-Public Use
  Company Number: US-PFIZER INC-2013240231

PATIENT
  Age: 57 Year
  Sex: Female
  Weight: 55.8 kg

DRUGS (3)
  1. LEVOTHYROXINE SODIUM [Suspect]
     Indication: HYPOTHYROIDISM
     Dosage: 100 UG, 1X/DAY FOR SIX DAYS
     Dates: start: 20130812, end: 201308
  2. LEVOTHYROXINE SODIUM [Suspect]
     Indication: AUTOIMMUNE THYROIDITIS
     Dosage: 50 UG, 1X/DAY ON SUNDAYS
     Dates: start: 20130812, end: 201308
  3. HYDROCHLOROTHIAZIDE [Concomitant]
     Indication: HYPERTENSION
     Dosage: UNK

REACTIONS (3)
  - Chest pain [Unknown]
  - Oesophageal pain [Recovering/Resolving]
  - Asthenopia [Recovered/Resolved]
